FAERS Safety Report 8046507-X (Version None)
Quarter: 2012Q1

REPORT INFORMATION
  Report Type: 
  Country: None (occurrence: None)
  Receive Date: 20120113
  Receipt Date: 20120111
  Transmission Date: 20120608
  Serious: Yes (Hospitalization)
  Sender: FDA-Public Use
  Company Number: KR-ABBOTT-12P-090-0892402-00

PATIENT
  Sex: Male
  Weight: 61.5 kg

DRUGS (5)
  1. FOSRENOL [Concomitant]
     Indication: HYPERPHOSPHATAEMIA
     Route: 048
     Dates: start: 20090103, end: 20100721
  2. ZEMPLAR [Suspect]
     Route: 042
     Dates: start: 20091223, end: 20100616
  3. ZEMPLAR [Suspect]
     Route: 042
     Dates: start: 20090625, end: 20090629
  4. ZEMPLAR [Suspect]
     Route: 042
     Dates: start: 20091014, end: 20091028
  5. ZEMPLAR [Suspect]
     Indication: HYPERPARATHYROIDISM
     Route: 042
     Dates: start: 20090401, end: 20090624

REACTIONS (4)
  - DEAFNESS NEUROSENSORY [None]
  - PANCYTOPENIA [None]
  - PARATHYROIDECTOMY [None]
  - UNEVALUABLE EVENT [None]
